FAERS Safety Report 11593929 (Version 2)
Quarter: 2017Q1

REPORT INFORMATION
  Report Type: Spontaneous
  Country: US (occurrence: US)
  Receive Date: 20151005
  Receipt Date: 20170223
  Transmission Date: 20170428
  Serious: Yes (Other)
  Sender: FDA-Public Use
  Company Number: US-ELI_LILLY_AND_COMPANY-US201510000980

PATIENT
  Sex: Female

DRUGS (2)
  1. CYMBALTA [Suspect]
     Active Substance: DULOXETINE HYDROCHLORIDE
     Indication: PAIN
     Dosage: 60 MG, QD
     Route: 065
  2. CYMBALTA [Suspect]
     Active Substance: DULOXETINE HYDROCHLORIDE
     Indication: DEPRESSION

REACTIONS (12)
  - Anxiety [Unknown]
  - Headache [Unknown]
  - Tearfulness [Unknown]
  - Nausea [Unknown]
  - Flushing [Unknown]
  - Fatigue [Unknown]
  - Drug withdrawal syndrome [Unknown]
  - Diarrhoea [Unknown]
  - Vomiting [Unknown]
  - Dizziness [Unknown]
  - Paraesthesia [Unknown]
  - Asthenia [Unknown]
